FAERS Safety Report 5213260-4 (Version None)
Quarter: 2007Q1

REPORT INFORMATION
  Report Type: 
  Country: None (occurrence: None)
  Receive Date: 20070117
  Receipt Date: 20070117
  Transmission Date: 20070707
  Serious: Yes (Death)
  Sender: FDA-Public Use
  Company Number: None

PATIENT
  Sex: Male
  Weight: 164.2 kg

DRUGS (3)
  1. AVASTIN [Suspect]
     Indication: LEIOMYOSARCOMA
     Dosage: 305 MG/KG IV
     Route: 042
     Dates: start: 20061013, end: 20061220
  2. GEMCITABINE [Suspect]
     Indication: LEIOMYOSARCOMA
     Dosage: 2490 MG/M3 IV
     Route: 042
     Dates: start: 20061013, end: 20061220
  3. DOCETAXEL [Suspect]
     Dosage: 83 MG/M3 IV
     Route: 042

REACTIONS (6)
  - ADHESION [None]
  - CARDIAC ARREST [None]
  - LARGE INTESTINE PERFORATION [None]
  - PULMONARY EMBOLISM [None]
  - RESPIRATORY FAILURE [None]
  - SARCOMA [None]
